FAERS Safety Report 23794325 (Version 1)
Quarter: 2024Q2

REPORT INFORMATION
  Report Type: Spontaneous
  Country: US (occurrence: US)
  Receive Date: 20240429
  Receipt Date: 20240429
  Transmission Date: 20240716
  Serious: No
  Sender: FDA-Public Use
  Company Number: US-PFIZER INC-202400090834

PATIENT
  Sex: Male

DRUGS (1)
  1. GENOTROPIN [Suspect]
     Active Substance: SOMATROPIN
     Dosage: HIS DOSAGE IS 2.4 AND SHE HAS ONLY BEEN ABLE, SHE IS GIVING A DOSE OF 2.2 AND SHE SAYS IN DAYS, THER

REACTIONS (3)
  - Injection site pain [Unknown]
  - Incorrect dosage administered [Unknown]
  - Device mechanical issue [Unknown]
